FAERS Safety Report 14664922 (Version 1)
Quarter: 2018Q1

REPORT INFORMATION
  Report Type: Spontaneous
  Country: US (occurrence: US)
  Receive Date: 20180319
  Receipt Date: 20180319
  Transmission Date: 20180509
  Serious: Yes (Hospitalization)
  Sender: FDA-Public Use
  Company Number: None

PATIENT
  Age: 70 Year
  Sex: Female

DRUGS (18)
  1. LISINOPRIL. [Concomitant]
     Active Substance: LISINOPRIL
     Dates: start: 20170814
  2. SIMVASTATIN. [Concomitant]
     Active Substance: SIMVASTATIN
     Dates: start: 20180228
  3. LEVETIRACETA [Concomitant]
     Dates: start: 20171011
  4. METFORMIN [Concomitant]
     Active Substance: METFORMIN HYDROCHLORIDE
     Dates: start: 20170814
  5. CLOPIDOGREL [Concomitant]
     Active Substance: CLOPIDOGREL BISULFATE
     Dates: start: 20100610
  6. OMEPRAZOLE. [Concomitant]
     Active Substance: OMEPRAZOLE
     Dates: start: 20180111
  7. TRAZODONE [Concomitant]
     Active Substance: TRAZODONE HYDROCHLORIDE
     Dates: start: 20180318
  8. KLONOPIN [Concomitant]
     Active Substance: CLONAZEPAM
     Dates: start: 20100610
  9. VALVD HOLDING [Concomitant]
     Dates: start: 20180304
  10. VENTOLIN HFA [Concomitant]
     Active Substance: ALBUTEROL SULFATE
     Dates: start: 20180304
  11. AROMASIN [Concomitant]
     Active Substance: EXEMESTANE
     Dates: start: 20100610
  12. ASPIRIN. [Concomitant]
     Active Substance: ASPIRIN
     Dates: start: 20100610
  13. LEXAPRO [Concomitant]
     Active Substance: ESCITALOPRAM OXALATE
     Dates: start: 20100610
  14. IBRANCE [Suspect]
     Active Substance: PALBOCICLIB
     Indication: BREAST CANCER FEMALE
     Route: 048
     Dates: start: 20170630
  15. LETROZOLE. [Concomitant]
     Active Substance: LETROZOLE
     Dates: start: 20170930
  16. LORAZEPAM. [Concomitant]
     Active Substance: LORAZEPAM
     Dates: start: 20180225
  17. VITAMIN D3 [Concomitant]
     Active Substance: CHOLECALCIFEROL
     Dates: start: 20170620
  18. HYDROCO/APAP [Concomitant]
     Active Substance: ACETAMINOPHEN\HYDROCODONE
     Dates: start: 20180314

REACTIONS (2)
  - Fall [None]
  - Memory impairment [None]
